FAERS Safety Report 9886026 (Version 3)
Quarter: 2014Q2

REPORT INFORMATION
  Report Type: Spontaneous
  Country: GB (occurrence: GB)
  Receive Date: 20140210
  Receipt Date: 20140414
  Transmission Date: 20141212
  Serious: Yes (Death, Other)
  Sender: FDA-Public Use
  Company Number: PHFR2014GB001327

PATIENT
  Age: 59 Year
  Sex: Female

DRUGS (3)
  1. CLOZARIL [Suspect]
     Dosage: UNK
     Route: 048
     Dates: start: 20061204
  2. CLOZARIL [Suspect]
     Dosage: 400 MG, QD
     Route: 048
     Dates: end: 20140211
  3. CYCLIZINE [Concomitant]
     Dosage: UNK

REACTIONS (5)
  - Lung cancer metastatic [Fatal]
  - Metastases to kidney [Fatal]
  - Antipsychotic drug level increased [Recovered/Resolved]
  - White blood cell count increased [Recovered/Resolved]
  - Neutrophil count increased [Recovered/Resolved]
